FAERS Safety Report 10156965 (Version 1)
Quarter: 2014Q2

REPORT INFORMATION
  Report Type: Spontaneous
  Country: BR (occurrence: BR)
  Receive Date: 20140507
  Receipt Date: 20140507
  Transmission Date: 20141212
  Serious: Yes (Other)
  Sender: FDA-Public Use
  Company Number: BR-009507513-1404BRA014729

PATIENT
  Age: 38 Year
  Sex: Female
  Weight: 73 kg

DRUGS (5)
  1. NUVARING [Suspect]
     Indication: CONTRACEPTION
     Dosage: 3 WEEKS OF USE AND 1 WEEK OF PAUSE
     Route: 067
     Dates: start: 201301, end: 201312
  2. NUVARING [Suspect]
     Dosage: 3 WEEKS OF USE AND 1 WEEK OF PAUSE
     Route: 067
     Dates: start: 20140324
  3. PURAN T4 [Concomitant]
     Indication: HYPOTHYROIDISM
     Dosage: 125 MICROGRAM, QAM
     Route: 048
     Dates: start: 2004
  4. SIMVASTATIN (NON-MERCK) [Concomitant]
     Indication: PROPHYLAXIS
     Dosage: 20 MG, QPM
     Route: 048
     Dates: start: 2011
  5. INSULIN [Concomitant]
     Indication: TYPE 1 DIABETES MELLITUS
     Dosage: 1 INJECTIONS, BID
     Dates: start: 2008

REACTIONS (11)
  - Abortion spontaneous [Recovered/Resolved]
  - Serum ferritin decreased [Not Recovered/Not Resolved]
  - Glycosylated haemoglobin increased [Not Recovered/Not Resolved]
  - Blood glucose abnormal [Not Recovered/Not Resolved]
  - Fructosamine increased [Not Recovered/Not Resolved]
  - Incorrect drug administration duration [Unknown]
  - Maternal exposure before pregnancy [Unknown]
  - Abnormal withdrawal bleeding [Not Recovered/Not Resolved]
  - Urinary tract infection [Recovered/Resolved]
  - Urinary tract infection [Recovered/Resolved]
  - Alopecia [Not Recovered/Not Resolved]
